FAERS Safety Report 7617246-1 (Version None)
Quarter: 2011Q3

REPORT INFORMATION
  Report Type: 
  Country: None (occurrence: None)
  Receive Date: 20110718
  Receipt Date: 20110711
  Transmission Date: 20111222
  Serious: Yes (Other)
  Sender: FDA-Public Use
  Company Number: US-JNJFOC-20110608553

PATIENT
  Age: 2 Decade
  Sex: Female

DRUGS (4)
  1. TRAZODONE [Concomitant]
     Route: 048
  2. RISPERDAL CONSTA [Suspect]
     Indication: BIPOLAR DISORDER
     Route: 030
     Dates: start: 20110101
  3. RISPERDAL CONSTA [Suspect]
     Indication: PSYCHOTIC DISORDER
     Route: 030
     Dates: start: 20110101
  4. DEPAKOTE ER [Concomitant]
     Route: 048

REACTIONS (4)
  - WEIGHT INCREASED [None]
  - BREAST DISCHARGE [None]
  - BLOOD PROLACTIN INCREASED [None]
  - AMENORRHOEA [None]
